FAERS Safety Report 11370716 (Version 2)
Quarter: 2015Q3

REPORT INFORMATION
  Report Type: Spontaneous
  Country: JP (occurrence: JP)
  Receive Date: 20150812
  Receipt Date: 20150901
  Transmission Date: 20151125
  Serious: Yes (Other)
  Sender: FDA-Public Use
  Company Number: JP-PFIZER INC-2015266054

PATIENT
  Age: 67 Year
  Sex: Male

DRUGS (1)
  1. SELARA [Suspect]
     Active Substance: EPLERENONE
     Dosage: 25 MG, DAILY
     Route: 048
     Dates: start: 201110, end: 20150821

REACTIONS (1)
  - Renal disorder [Unknown]

NARRATIVE: CASE EVENT DATE: 201201
